FAERS Safety Report 5481601-9 (Version None)
Quarter: 2007Q4

REPORT INFORMATION
  Report Type: 
  Country: None (occurrence: None)
  Receive Date: 20071010
  Receipt Date: 20070928
  Transmission Date: 20080405
  Serious: Yes (Life-Threatening, Hospitalization, Other)
  Sender: FDA-Public Use
  Company Number: AT-PURDUE-DEU_2007_0003629

PATIENT
  Age: 10 Month
  Sex: Male
  Weight: 9 kg

DRUGS (1)
  1. MORPHINE [Suspect]
     Indication: ACCIDENTAL DRUG INTAKE BY CHILD
     Dosage: 1 CAPSL, SINGLE
     Route: 048
     Dates: start: 20070908, end: 20070908

REACTIONS (3)
  - ACCIDENTAL DRUG INTAKE BY CHILD [None]
  - LOSS OF CONSCIOUSNESS [None]
  - RESPIRATORY ARREST [None]
